FAERS Safety Report 4322416-4 (Version None)
Quarter: 2004Q1

REPORT INFORMATION
  Report Type: 
  Country: None (occurrence: None)
  Receive Date: 20040324
  Receipt Date: 20040319
  Transmission Date: 20041129
  Serious: Yes (Hospitalization)
  Sender: FDA-Public Use
  Company Number: PHBS2004JP03782

PATIENT
  Sex: Female

DRUGS (8)
  1. STARSIS #AJ [Suspect]
     Route: 048
     Dates: end: 20031030
  2. AMARYL [Concomitant]
     Dates: start: 20031030
  3. DIGOXIN [Concomitant]
  4. RENIVACE [Concomitant]
     Dosage: 5 MG, UNK
  5. ADALAT [Concomitant]
     Dosage: 20 MG, UNK
  6. SELBEX [Concomitant]
  7. WARFARIN SODIUM [Concomitant]
  8. DEPAKENE [Concomitant]
     Dosage: 200 MG, UNK

REACTIONS (1)
  - CEREBRAL INFARCTION [None]
